FAERS Safety Report 4535335-5 (Version None)
Quarter: 2004Q4

REPORT INFORMATION
  Report Type: 
  Country: None (occurrence: None)
  Receive Date: 20041214
  Receipt Date: 20040910
  Transmission Date: 20050328
  Serious: No
  Sender: FDA-Public Use
  Company Number: 2004234898US

PATIENT
  Sex: Male
  Weight: 95.2 kg

DRUGS (4)
  1. BEXTRA [Suspect]
     Indication: ARTHRITIS
     Dosage: 20 MG, QD, ORAL
     Route: 048
     Dates: start: 20040401
  2. METHOTREXATE [Concomitant]
  3. HYTRIN (TERAZOSON HYROCHLORIDE) [Concomitant]
  4. FOLIC ACID [Concomitant]

REACTIONS (1)
  - DRY EYE [None]
